FAERS Safety Report 6499793-1 (Version None)
Quarter: 2009Q4

REPORT INFORMATION
  Report Type: 
  Country: None (occurrence: None)
  Receive Date: 20091214
  Receipt Date: 20091207
  Transmission Date: 20100525
  Serious: Yes (Other)
  Sender: FDA-Public Use
  Company Number: 002684

PATIENT
  Age: 19 Year
  Sex: Female

DRUGS (1)
  1. LACOSAMIDE [Suspect]
     Dosage: (100 MG BID ORAL)

REACTIONS (4)
  - ABNORMAL BEHAVIOUR [None]
  - SELF INJURIOUS BEHAVIOUR [None]
  - STATUS EPILEPTICUS [None]
  - SUICIDAL BEHAVIOUR [None]
